FAERS Safety Report 18790363 (Version 3)
Quarter: 2022Q1

REPORT INFORMATION
  Report Type: Report from Study
  Country: DE (occurrence: DE)
  Receive Date: 20210125
  Receipt Date: 20220120
  Transmission Date: 20220423
  Serious: Yes (Hospitalization, Other)
  Sender: FDA-Public Use
  Company Number: DE-ABBVIE-21K-062-3741696-00

PATIENT
  Age: 53 Year
  Sex: Male
  Weight: 40.860 kg

DRUGS (1)
  1. HUMIRA [Suspect]
     Active Substance: ADALIMUMAB
     Indication: Hidradenitis
     Route: 058
     Dates: start: 20160901, end: 202101

REACTIONS (10)
  - Intermittent claudication [Recovering/Resolving]
  - Non-Hodgkin^s lymphoma [Unknown]
  - B-cell lymphoma [Unknown]
  - Lymphadenitis [Recovering/Resolving]
  - Rheumatic disorder [Not Recovered/Not Resolved]
  - Spinal osteoarthritis [Not Recovered/Not Resolved]
  - Monoplegia [Not Recovered/Not Resolved]
  - Skin disorder [Unknown]
  - Paraesthesia [Not Recovered/Not Resolved]
  - Psoriasis [Not Recovered/Not Resolved]

NARRATIVE: CASE EVENT DATE: 20160901
